FAERS Safety Report 16824503 (Version 30)
Quarter: 2022Q4

REPORT INFORMATION
  Report Type: Spontaneous
  Country: GB (occurrence: GB)
  Receive Date: 20190918
  Receipt Date: 20221201
  Transmission Date: 20230113
  Serious: Yes (Death, Congenital Anomaly, Other)
  Sender: FDA-Public Use
  Company Number: GB-35507-2019-05592

PATIENT
  Age: 4 Day
  Sex: Male
  Weight: 2.855 kg

DRUGS (36)
  1. NIFEDIPINE [Suspect]
     Active Substance: NIFEDIPINE
     Indication: Hypertension
     Dosage: FILM-COATED TABLET/245
     Route: 064
  2. NIFEDIPINE [Suspect]
     Active Substance: NIFEDIPINE
     Indication: Foetal exposure during pregnancy
     Dosage: MATERNAL DOSE: UNKNOWN
     Route: 064
  3. NIFEDIPINE [Suspect]
     Active Substance: NIFEDIPINE
     Indication: HIV infection
     Dosage: MATERNAL DOSE: UNKNOWN
     Route: 064
  4. LABETALOL [Suspect]
     Active Substance: LABETALOL\LABETALOL HYDROCHLORIDE
     Indication: Foetal exposure during pregnancy
     Dosage: TABLET/245
     Route: 064
  5. LABETALOL [Suspect]
     Active Substance: LABETALOL\LABETALOL HYDROCHLORIDE
     Indication: Hypertension
     Route: 064
  6. LABETALOL [Suspect]
     Active Substance: LABETALOL\LABETALOL HYDROCHLORIDE
     Dosage: UNK(TABLET), IN 1ST TRIMESTER
     Route: 064
  7. NEVIRAPINE [Suspect]
     Active Substance: NEVIRAPINE
     Indication: HIV infection
     Dosage: 400 MG/DAY, TABLET /245
     Route: 064
  8. NEVIRAPINE [Suspect]
     Active Substance: NEVIRAPINE
     Indication: Foetal exposure during pregnancy
     Dosage: 400 MG/DAY
     Route: 064
  9. ASPIRIN [Suspect]
     Active Substance: ASPIRIN
     Indication: Foetal exposure during pregnancy
     Dosage: UNK, (1 TRIMESTER)
     Route: 064
  10. ASPIRIN [Suspect]
     Active Substance: ASPIRIN
     Indication: Hypertension
     Route: 064
  11. VITAMIN D [Suspect]
     Active Substance: VITAMIN D NOS
     Indication: Foetal exposure during pregnancy
     Dosage: PRIOR TO CONCEPTION, DURING 1, 2 AND 3 TRIMESTER ( 39 WEEKS), VITAMIN D2,
     Route: 064
  12. CHOLECALCIFEROL [Suspect]
     Active Substance: CHOLECALCIFEROL
     Indication: Foetal exposure during pregnancy
     Route: 064
  13. LAMIVUDINE [Suspect]
     Active Substance: LAMIVUDINE
     Indication: HIV infection
     Dosage: 1 DOSAGE FORM, QD
     Route: 064
  14. LAMIVUDINE [Suspect]
     Active Substance: LAMIVUDINE
     Indication: Foetal exposure during pregnancy
     Dosage: MATERNAL DOSE: 1 DF, QD (DOSE: 1 TABLET/CAPSULE; STRENGTH: 600 MG/ 300 MG)
     Route: 064
  15. LAMIVUDINE [Suspect]
     Active Substance: LAMIVUDINE
     Dosage: MOTHER DOSE: 1 DF QD
     Route: 064
  16. LAMIVUDINE [Suspect]
     Active Substance: LAMIVUDINE
     Dosage: MATERNAL DOSE: 1 DOSAGE FORM, QD (POWDER FOR INFUSION), DURING FIRST TRIMESTER
     Route: 064
  17. LAMIVUDINE [Suspect]
     Active Substance: LAMIVUDINE
     Dosage: MATERNAL DOSE: 1 DF, QD (DOSE: 1 TABLET/CAPSULE; STRENGTH: 600 MG/ 300 MG)
     Route: 064
  18. LAMIVUDINE [Suspect]
     Active Substance: LAMIVUDINE
     Dosage: LAMIVUDINE DOSE: 300MG
     Route: 064
  19. LAMIVUDINE [Suspect]
     Active Substance: LAMIVUDINE
     Dosage: 1 DOSAGE FORM, QD  (DOSE: 1 TABLET/CAPSULE; STRENGTH: 600 MG/ 300 MG)
     Route: 064
  20. ABACAVIR [Suspect]
     Active Substance: ABACAVIR
     Indication: HIV infection
     Dosage: 400 DOSAGE FORM, QD
     Route: 064
  21. ABACAVIR [Suspect]
     Active Substance: ABACAVIR
     Dosage: ABACAVIR DOSE 600MG.
     Route: 064
  22. VIRAMUNE [Suspect]
     Active Substance: NEVIRAPINE
     Indication: HIV infection
     Dosage: 400 MILLIGRAM, QD
     Route: 064
  23. VIRAMUNE [Suspect]
     Active Substance: NEVIRAPINE
     Indication: Foetal exposure during pregnancy
     Dosage: MATERNAL DOSE: 400 MG, QD
     Route: 064
  24. ABACAVIR\LAMIVUDINE [Suspect]
     Active Substance: ABACAVIR\LAMIVUDINE
     Indication: Foetal exposure during pregnancy
     Dosage: ABACAVIR DOSE: 400 DOSAGE FORM, QD (400 DOSAGE FORM, ONCE A DAY)
     Route: 064
  25. ABACAVIR\LAMIVUDINE [Suspect]
     Active Substance: ABACAVIR\LAMIVUDINE
     Indication: HIV infection
     Dosage: 1 DF, QD (DOSE: 1 TABLET/CAPSULE; STRENGTH: 600 MG/ 300 MG)
     Route: 064
  26. ABACAVIR\LAMIVUDINE [Suspect]
     Active Substance: ABACAVIR\LAMIVUDINE
     Dosage: ABACAVIR DOSE 600MG.
     Route: 064
  27. ABACAVIR\LAMIVUDINE [Suspect]
     Active Substance: ABACAVIR\LAMIVUDINE
     Dosage: 1 DOSAGE FORM TAKEN FOR COMBINED PRODUCT
     Route: 064
  28. ABACAVIR\LAMIVUDINE [Suspect]
     Active Substance: ABACAVIR\LAMIVUDINE
     Dosage: LAMIVUDINE DOSE: 300MG.
     Route: 064
  29. COMBIVIR [Suspect]
     Active Substance: LAMIVUDINE\ZIDOVUDINE
     Indication: Foetal exposure during pregnancy
     Dosage: TABLETS/245
     Route: 064
  30. ERGOCALCIFEROL [Suspect]
     Active Substance: ERGOCALCIFEROL
     Indication: Foetal exposure during pregnancy
     Dosage: TABLET/245
     Route: 064
  31. VITAMIN D2 [Suspect]
     Active Substance: ERGOCALCIFEROL
     Indication: Product used for unknown indication
     Route: 064
  32. ERGOCALCIFEROL [Concomitant]
     Active Substance: ERGOCALCIFEROL
     Indication: Foetal exposure during pregnancy
  33. LABETALOL [Concomitant]
     Active Substance: LABETALOL\LABETALOL HYDROCHLORIDE
     Indication: Foetal exposure during pregnancy
  34. NIFEDIPINE [Concomitant]
     Active Substance: NIFEDIPINE
     Indication: Product used for unknown indication
  35. ASPIRIN [Concomitant]
     Active Substance: ASPIRIN
     Indication: Foetal exposure during pregnancy
     Dosage: UNK
  36. VITAMIN D2 [Concomitant]
     Active Substance: ERGOCALCIFEROL
     Indication: Product used for unknown indication
     Dosage: TABLET
     Route: 064

REACTIONS (17)
  - Death [Fatal]
  - Pulmonary hypertension [Fatal]
  - Polydactyly [Fatal]
  - Trisomy 21 [Fatal]
  - Atrioventricular septal defect [Fatal]
  - Gene mutation [Fatal]
  - Attention deficit hyperactivity disorder [Fatal]
  - Macrocephaly [Fatal]
  - Dandy-Walker syndrome [Fatal]
  - Speech disorder developmental [Fatal]
  - Neurodevelopmental disorder [Fatal]
  - Congenital central nervous system anomaly [Fatal]
  - Ataxia [Fatal]
  - Foetal exposure during pregnancy [Fatal]
  - Foetal exposure during pregnancy [Fatal]
  - Polydactyly [Unknown]
  - Pre-eclampsia [Unknown]

NARRATIVE: CASE EVENT DATE: 20110305
